FAERS Safety Report 9891261 (Version 1)
Quarter: 2014Q1

REPORT INFORMATION
  Report Type: Spontaneous
  Country: FR (occurrence: FR)
  Receive Date: 20140212
  Receipt Date: 20140212
  Transmission Date: 20141002
  Serious: Yes (Hospitalization)
  Sender: FDA-Public Use
  Company Number: FR-009507513-1402FRA003995

PATIENT
  Age: 65 Year
  Sex: Male

DRUGS (10)
  1. VELMETIA [Suspect]
     Indication: DIABETES MELLITUS
     Dosage: UNK
     Route: 048
     Dates: end: 20130429
  2. CISPLATIN [Concomitant]
     Dosage: UNK
     Dates: start: 20130422, end: 20130426
  3. TAXOTERE [Concomitant]
     Dosage: UNK
     Dates: start: 20130422, end: 20130426
  4. FLUOROURACIL [Concomitant]
     Dosage: UNK
     Dates: start: 20130422, end: 20130426
  5. BIPRETERAX (INDAPAMIDE (+) PERINDOPRIL ERBUMINE) [Concomitant]
     Dosage: UNK
  6. KARDEGIC [Concomitant]
     Dosage: UNK
  7. SIMVASTATIN [Concomitant]
     Dosage: UNK
  8. ISOPTINE [Concomitant]
     Dosage: UNK
  9. PARIET [Concomitant]
     Dosage: UNK
  10. ALPRAZOLAM [Concomitant]
     Dosage: UNK

REACTIONS (1)
  - Metabolic acidosis [Recovered/Resolved]
